FAERS Safety Report 23090209 (Version 2)
Quarter: 2024Q2

REPORT INFORMATION
  Report Type: Spontaneous
  Country: US (occurrence: US)
  Receive Date: 20231020
  Receipt Date: 20240510
  Transmission Date: 20240715
  Serious: No
  Sender: FDA-Public Use
  Company Number: US-PFIZER INC-PV202300171668

PATIENT
  Age: 75 Year
  Sex: Male
  Weight: 72.562 kg

DRUGS (2)
  1. XELJANZ XR [Suspect]
     Active Substance: TOFACITINIB CITRATE
     Indication: Rheumatoid arthritis
     Dosage: 11 MG, 1X/DAY
     Route: 048
     Dates: start: 202306
  2. DIFLUNISAL [Concomitant]
     Active Substance: DIFLUNISAL
     Dosage: UNK
     Dates: start: 2021

REACTIONS (1)
  - Illness [Unknown]
